FAERS Safety Report 8495352-X (Version None)
Quarter: 2012Q2

REPORT INFORMATION
  Report Type: 
  Country: None (occurrence: None)
  Receive Date: 20120628
  Receipt Date: 20120615
  Transmission Date: 20120825
  Serious: Yes (Hospitalization, Disabling)
  Sender: FDA-Public Use
  Company Number: 2012P1030160

PATIENT
  Age: 68 Year
  Sex: Female
  Weight: 92.5338 kg

DRUGS (5)
  1. LOSARTAN POTASSIUM [Concomitant]
  2. SYNTHROID [Concomitant]
  3. FENTANYL-50 [Suspect]
     Indication: BACK DISORDER
     Dosage: 1 PATCH Q72H; TDER 1 PATCH;Q72H;TDER
     Dates: start: 20110501
  4. FENTANYL-50 [Suspect]
     Indication: BACK DISORDER
     Dosage: 1 PATCH Q72H; TDER 1 PATCH;Q72H;TDER
     Dates: start: 20090401, end: 20090101
  5. CLONIDINE HCL [Concomitant]

REACTIONS (10)
  - DRUG TOLERANCE INCREASED [None]
  - PRODUCT ADHESION ISSUE [None]
  - DRUG EFFECT DECREASED [None]
  - BREAKTHROUGH PAIN [None]
  - NEURALGIA [None]
  - PAIN [None]
  - DRUG EFFECT DELAYED [None]
  - BACK DISORDER [None]
  - DRUG INTERACTION [None]
  - DEVICE LEAKAGE [None]
